FAERS Safety Report 9146163 (Version 2)
Quarter: 2013Q1

REPORT INFORMATION
  Report Type: Spontaneous
  Country: IL (occurrence: IL)
  Receive Date: 20130307
  Receipt Date: 20130319
  Transmission Date: 20140127
  Serious: Yes (Other)
  Sender: FDA-Public Use
  Company Number: PHHY2013IL022181

PATIENT
  Sex: Female

DRUGS (2)
  1. TASIGNA [Suspect]
     Dosage: 400 MG, BID
     Route: 048
  2. ANTIHYPERTENSIVES [Concomitant]

REACTIONS (5)
  - Myocardial infarction [Unknown]
  - Chest discomfort [Unknown]
  - Pain in extremity [Unknown]
  - Dyspnoea [Unknown]
  - Pain in jaw [Unknown]
